FAERS Safety Report 7983264-7 (Version None)
Quarter: 2011Q4

REPORT INFORMATION
  Report Type: 
  Country: None (occurrence: None)
  Receive Date: 20111215
  Receipt Date: 20111208
  Transmission Date: 20120403
  Serious: No
  Sender: FDA-Public Use
  Company Number: US-ELI_LILLY_AND_COMPANY-US201111004307

PATIENT
  Age: 57 Year
  Sex: Male
  Weight: 90.703 kg

DRUGS (8)
  1. VIAGRA [Concomitant]
  2. LEVOTHYROXINE SODIUM [Concomitant]
  3. CIALIS [Suspect]
     Indication: ERECTILE DYSFUNCTION
     Dosage: 20 MG, WEEKLY (1/W)
     Route: 048
     Dates: start: 20080101, end: 20111024
  4. ASTELIN [Concomitant]
  5. ATROVENT [Concomitant]
  6. LUNESTA [Concomitant]
  7. TESTOSTERONE [Concomitant]
  8. VALTREX [Concomitant]

REACTIONS (2)
  - MEDICATION ERROR [None]
  - VISUAL FIELD DEFECT [None]
